FAERS Safety Report 8184748-1 (Version None)
Quarter: 2012Q1

REPORT INFORMATION
  Report Type: 
  Country: None (occurrence: None)
  Receive Date: 20120305
  Receipt Date: 20120305
  Transmission Date: 20120608
  Serious: Yes (Life-Threatening, Hospitalization, Other)
  Sender: FDA-Public Use
  Company Number: None

PATIENT
  Age: 57 Year
  Sex: Female
  Weight: 89.811 kg

DRUGS (1)
  1. IMMUNE GLOBULIN INTRAVENOUS (HUMAN) [Suspect]
     Indication: IMMUNE SYSTEM DISORDER
     Dosage: 20 G X 3
     Route: 041
     Dates: start: 20110418, end: 20110418

REACTIONS (5)
  - PRODUCT QUALITY ISSUE [None]
  - LOSS OF EMPLOYMENT [None]
  - BRAIN INJURY [None]
  - ENCEPHALITIS [None]
  - WRONG TECHNIQUE IN DRUG USAGE PROCESS [None]
